FAERS Safety Report 15540244 (Version 1)
Quarter: 2018Q4

REPORT INFORMATION
  Report Type: Spontaneous
  Country: US (occurrence: US)
  Receive Date: 20181023
  Receipt Date: 20181023
  Transmission Date: 20190205
  Serious: No
  Sender: FDA-Public Use
  Company Number: US-BAYER-2018-187486

PATIENT
  Age: 59 Year
  Sex: Female

DRUGS (1)
  1. BETASERON [Suspect]
     Active Substance: INTERFERON BETA-1B
     Dosage: UNK, QOD
     Route: 058
     Dates: start: 2015

REACTIONS (4)
  - Limb discomfort [Recovered/Resolved]
  - Gait inability [Recovered/Resolved]
  - Asthenia [None]
  - Chills [Recovered/Resolved]

NARRATIVE: CASE EVENT DATE: 20181005
